FAERS Safety Report 6709517-8 (Version None)
Quarter: 2010Q2

REPORT INFORMATION
  Report Type: 
  Country: None (occurrence: None)
  Receive Date: 20100504
  Receipt Date: 20100427
  Transmission Date: 20101027
  Serious: Yes (Other)
  Sender: FDA-Public Use
  Company Number: JP-PFIZER INC-2010050220

PATIENT
  Age: 20 Year
  Sex: Female

DRUGS (5)
  1. ZITHROMAX [Suspect]
     Indication: PHARYNGITIS
     Dosage: 2 MG, 1X/DAY
     Route: 048
     Dates: start: 20100414, end: 20100414
  2. KAKKON-TO [Concomitant]
     Dosage: UNK
     Route: 048
     Dates: start: 20100414, end: 20100416
  3. LOXONIN [Concomitant]
     Dosage: UNK
     Route: 048
     Dates: start: 20100414
  4. SP TROCHE [Concomitant]
     Dosage: UNK
     Route: 048
  5. PABRON [Concomitant]
     Dosage: UNK
     Route: 048
     Dates: start: 20100413

REACTIONS (1)
  - HAEMATURIA [None]
